FAERS Safety Report 21654260 (Version 2)
Quarter: 2022Q4

REPORT INFORMATION
  Report Type: Spontaneous
  Country: US (occurrence: US)
  Receive Date: 20221129
  Receipt Date: 20221202
  Transmission Date: 20230113
  Serious: Yes (Other)
  Sender: FDA-Public Use
  Company Number: US-ORGANON-O2211USA001795

PATIENT
  Age: 27 Year
  Sex: Female
  Weight: 76.644 kg

DRUGS (1)
  1. NEXPLANON [Suspect]
     Active Substance: ETONOGESTREL
     Indication: Contraception
     Dosage: 1 IMPLANT (DOSE REPORTED AS 68 MG, ROUTE REPORTED AS IMPLANT), ONCE
     Route: 059
     Dates: start: 20220818, end: 20220830

REACTIONS (1)
  - Implant site infection [Recovered/Resolved]

NARRATIVE: CASE EVENT DATE: 20220818
